FAERS Safety Report 11815847 (Version 2)
Quarter: 2015Q4

REPORT INFORMATION
  Report Type: Report from Study
  Country: AU (occurrence: AU)
  Receive Date: 20151209
  Receipt Date: 20151218
  Transmission Date: 20160305
  Serious: Yes (Hospitalization, Other)
  Sender: FDA-Public Use
  Company Number: AU-ABBVIE-15P-008-1513233-00

PATIENT
  Age: 77 Year
  Sex: Male

DRUGS (1)
  1. LUCRIN DEPOT [Suspect]
     Active Substance: LEUPROLIDE ACETATE
     Indication: PROSTATE CANCER
     Route: 058
     Dates: start: 20140618

REACTIONS (6)
  - Fall [Recovering/Resolving]
  - Hip fracture [Recovering/Resolving]
  - Upper limb fracture [Recovering/Resolving]
  - Humerus fracture [Recovered/Resolved]
  - Femoral neck fracture [Recovered/Resolved]
  - Fall [Recovering/Resolving]

NARRATIVE: CASE EVENT DATE: 20141205
